FAERS Safety Report 6631033-2 (Version None)
Quarter: 2010Q1

REPORT INFORMATION
  Report Type: 
  Country: None (occurrence: None)
  Receive Date: 20100309
  Receipt Date: 20100301
  Transmission Date: 20100710
  Serious: Yes (Death)
  Sender: FDA-Public Use
  Company Number: DSA_42492_2010

PATIENT
  Sex: Female

DRUGS (10)
  1. XENAZINE [Suspect]
     Indication: DYSKINESIA
     Dosage: 25 MG BID ORAL, 12.5 MG BID ORAL
     Route: 048
     Dates: start: 20090728, end: 20091001
  2. XENAZINE [Suspect]
     Indication: HUNTINGTON'S CHOREA
     Dosage: 25 MG BID ORAL, 12.5 MG BID ORAL
     Route: 048
     Dates: start: 20090728, end: 20091001
  3. XENAZINE [Suspect]
     Indication: DYSKINESIA
     Dosage: 25 MG BID ORAL, 12.5 MG BID ORAL
     Route: 048
     Dates: start: 20091001, end: 20100101
  4. XENAZINE [Suspect]
     Indication: HUNTINGTON'S CHOREA
     Dosage: 25 MG BID ORAL, 12.5 MG BID ORAL
     Route: 048
     Dates: start: 20091001, end: 20100101
  5. ZOLOFT [Concomitant]
  6. HALDOL [Concomitant]
  7. ZYPREXA [Concomitant]
  8. LORAZEPAM [Concomitant]
  9. REMERON [Concomitant]
  10. METOCLOPRAMIDE [Concomitant]

REACTIONS (4)
  - AGGRESSION [None]
  - BLOOD PRESSURE DECREASED [None]
  - CRYING [None]
  - SCREAMING [None]
